FAERS Safety Report 8952715 (Version 2)
Quarter: 2013Q2

REPORT INFORMATION
  Report Type: Report from Study
  Country: BR (occurrence: BR)
  Receive Date: 20121205
  Receipt Date: 20130411
  Transmission Date: 20140414
  Serious: Yes (Hospitalization)
  Sender: FDA-Public Use
  Company Number: BR-ABBOTT-12P-020-1014845-00

PATIENT
  Age: 51 Year
  Sex: Female
  Weight: 74 kg

DRUGS (7)
  1. HUMIRA [Suspect]
     Indication: CROHN^S DISEASE
     Route: 058
     Dates: start: 20090707
  2. LOSARTAN [Concomitant]
     Indication: BLOOD PRESSURE
     Route: 048
  3. UNKNOWN DRUG [Concomitant]
     Indication: BLOOD PRESSURE
     Route: 048
  4. UNKNOWN DRUG [Concomitant]
     Indication: THYROID DISORDER
     Route: 048
  5. BUPROPRION [Concomitant]
     Indication: PRODUCT USED FOR UNKNOWN INDICATION
     Route: 048
  6. LEVOTHYROXINE [Concomitant]
     Indication: PRODUCT USED FOR UNKNOWN INDICATION
  7. EFEXOR [Concomitant]
     Indication: PRODUCT USED FOR UNKNOWN INDICATION

REACTIONS (8)
  - Condition aggravated [Unknown]
  - Therapeutic response decreased [Unknown]
  - Crohn^s disease [Recovering/Resolving]
  - Crohn^s disease [Unknown]
  - Colitis [Unknown]
  - Pseudopolyposis [Unknown]
  - Erythema nodosum [Not Recovered/Not Resolved]
  - Iridocyclitis [Unknown]
